FAERS Safety Report 11340477 (Version 1)
Quarter: 2015Q3

REPORT INFORMATION
  Report Type: Spontaneous
  Country: DE (occurrence: DE)
  Receive Date: 20150805
  Receipt Date: 20150805
  Transmission Date: 20151125
  Serious: Yes (Hospitalization)
  Sender: FDA-Public Use
  Company Number: DE-JNJFOC-20150721868

PATIENT
  Age: 39 Year
  Sex: Male
  Weight: 92 kg

DRUGS (2)
  1. REACTINE DUO [Suspect]
     Active Substance: CETIRIZINE HYDROCHLORIDE\PSEUDOEPHEDRINE HYDROCHLORIDE
     Route: 048
  2. REACTINE DUO [Suspect]
     Active Substance: CETIRIZINE HYDROCHLORIDE\PSEUDOEPHEDRINE HYDROCHLORIDE
     Indication: RHINITIS ALLERGIC
     Route: 048
     Dates: start: 20150605, end: 20150605

REACTIONS (6)
  - Fine motor skill dysfunction [Unknown]
  - Hemiparesis [Unknown]
  - Gait disturbance [Unknown]
  - Hypoaesthesia [Unknown]
  - Dizziness [Unknown]
  - Cerebrovascular accident [Unknown]

NARRATIVE: CASE EVENT DATE: 20150605
